FAERS Safety Report 9771809 (Version 1)
Quarter: 2013Q4

REPORT INFORMATION
  Report Type: Spontaneous
  Country: US (occurrence: US)
  Receive Date: 20131219
  Receipt Date: 20131219
  Transmission Date: 20140711
  Serious: No
  Sender: FDA-Public Use
  Company Number: US-009507513-1312USA007520

PATIENT
  Age: 30 Year
  Sex: Female

DRUGS (5)
  1. REBETOL [Suspect]
     Dosage: UNK
     Route: 048
     Dates: start: 20130909
  2. VICTRELIS [Suspect]
     Indication: HEPATITIS C
     Dosage: 4 (200 MG), TID
     Route: 048
     Dates: start: 20131007
  3. PEGASYS [Suspect]
     Dosage: UNK
     Dates: start: 20130909
  4. TYLENOL [Concomitant]
  5. SUBOXONE [Concomitant]

REACTIONS (3)
  - Pain [Not Recovered/Not Resolved]
  - Influenza like illness [Not Recovered/Not Resolved]
  - Nausea [Not Recovered/Not Resolved]
